FAERS Safety Report 10023435 (Version 1)
Quarter: 2013Q4

REPORT INFORMATION
  Report Type: Spontaneous
  Country: GB (occurrence: None)
  Receive Date: 20131224
  Receipt Date: 20131224
  Transmission Date: 20140711
  Serious: Yes (Other)
  Sender: FDA-Public Use
  Company Number: NL01PV13.34882

PATIENT
  Age: 90 Year
  Sex: Male

DRUGS (2)
  1. TAMSULOSIN [Suspect]
     Indication: BENIGN PROSTATIC HYPERPLASIA
  2. TAMSULOSIN [Suspect]
     Indication: LOWER URINARY TRACT SYMPTOMS

REACTIONS (2)
  - Blood pressure decreased [None]
  - Overdose [None]
